FAERS Safety Report 13319190 (Version 7)
Quarter: 2018Q1

REPORT INFORMATION
  Report Type: Report from Study
  Country: CA (occurrence: CA)
  Receive Date: 20170310
  Receipt Date: 20180302
  Transmission Date: 20180508
  Serious: Yes (Hospitalization, Other)
  Sender: FDA-Public Use
  Company Number: PHHY2014CA064663

PATIENT
  Age: 56 Year
  Sex: Female

DRUGS (4)
  1. AFINITOR [Suspect]
     Active Substance: EVEROLIMUS
     Indication: PANCREATIC NEUROENDOCRINE TUMOUR METASTATIC
     Dosage: 10 MG, QD
     Route: 048
     Dates: start: 20140520, end: 20170307
  2. AFINITOR [Suspect]
     Active Substance: EVEROLIMUS
     Dosage: 10 MG, QD
     Route: 048
     Dates: start: 20170627, end: 201708
  3. SANDOSTATIN LAR DEPOT [Suspect]
     Active Substance: OCTREOTIDE ACETATE
     Indication: PANCREATIC NEUROENDOCRINE TUMOUR METASTATIC
     Dosage: 30 MG, QMO
     Route: 030
     Dates: start: 20140520, end: 201708
  4. AFINITOR [Suspect]
     Active Substance: EVEROLIMUS
     Dosage: 5 MG QD
     Route: 048
     Dates: start: 20170308, end: 20170626

REACTIONS (27)
  - Anxiety [Unknown]
  - Stress [Unknown]
  - Weight abnormal [Unknown]
  - Bowel movement irregularity [Unknown]
  - Pancreatic neuroendocrine tumour metastatic [Unknown]
  - Abdominal tenderness [Unknown]
  - Feeling abnormal [Unknown]
  - Injection site dermatitis [Recovered/Resolved]
  - Cholelithiasis [Unknown]
  - Fatigue [Unknown]
  - Abdominal distension [Unknown]
  - Malignant neoplasm progression [Unknown]
  - Crying [Unknown]
  - Abdominal pain [Unknown]
  - Bronchitis [Recovered/Resolved]
  - Gallbladder disorder [Unknown]
  - Eczema [Unknown]
  - Blood pressure systolic increased [Unknown]
  - Injection site pain [Recovered/Resolved]
  - Blood pressure increased [Unknown]
  - Drug ineffective [Unknown]
  - Jaundice [Unknown]
  - Emotional disorder [Unknown]
  - Fear [Unknown]
  - Injection site inflammation [Recovered/Resolved]
  - Injection site erythema [Recovered/Resolved]
  - Blood glucose decreased [Unknown]

NARRATIVE: CASE EVENT DATE: 201505
